FAERS Safety Report 12324662 (Version 2)
Quarter: 2016Q2

REPORT INFORMATION
  Report Type: Spontaneous
  Country: ES (occurrence: ES)
  Receive Date: 20160502
  Receipt Date: 20160530
  Transmission Date: 20160815
  Serious: Yes (Death, Hospitalization, Other)
  Sender: FDA-Public Use
  Company Number: ES-TAKEDA-2016TUS007562

PATIENT
  Age: 72 Year
  Sex: Female

DRUGS (1)
  1. TRINTELLIX [Suspect]
     Active Substance: VORTIOXETINE HYDROBROMIDE
     Indication: MAJOR DEPRESSION
     Dosage: 5 MG, UNK
     Route: 065
     Dates: start: 20160310

REACTIONS (11)
  - Bradycardia [Fatal]
  - Dyspnoea [Fatal]
  - Hypotension [Fatal]
  - Thrombotic stroke [Fatal]
  - Hyponatraemia [Fatal]
  - Aspiration [Fatal]
  - Polydipsia [Fatal]
  - Cardio-respiratory arrest [Fatal]
  - Depressed level of consciousness [Fatal]
  - Seizure [Fatal]
  - Coma [Fatal]
